FAERS Safety Report 9880357 (Version 1)
Quarter: 2014Q1

REPORT INFORMATION
  Report Type: Spontaneous
  Country: US (occurrence: None)
  Receive Date: 20140206
  Receipt Date: 20140206
  Transmission Date: 20141002
  Serious: Yes (Disabling)
  Sender: FDA-Public Use
  Company Number: None

PATIENT
  Age: 47 Year
  Sex: Female
  Weight: 69.85 kg

DRUGS (3)
  1. MARIO BADESCU [Suspect]
     Indication: SKIN IRRITATION
     Dosage: ^APPLY A SMALL AMOUNT^?AS NEEDED?APPLIED TO A SURFACE, USUALLY THE SKIN
     Dates: start: 20120115, end: 20131230
  2. MARIO BADESCU [Suspect]
     Indication: DRY SKIN
     Dosage: ^APPLY A SMALL AMOUNT^?AS NEEDED?APPLIED TO A SURFACE, USUALLY THE SKIN
     Dates: start: 20120115, end: 20131230
  3. MARIO BADESCU [Suspect]
     Indication: SKIN DISORDER
     Dosage: ^APPLY A SMALL AMOUNT^?AS NEEDED?APPLIED TO A SURFACE, USUALLY THE SKIN
     Dates: start: 20120115, end: 20131230

REACTIONS (16)
  - Local swelling [None]
  - Swelling face [None]
  - Erythema [None]
  - Erythema [None]
  - Drug withdrawal syndrome [None]
  - Drug ineffective [None]
  - Burning sensation [None]
  - Local swelling [None]
  - Dry eye [None]
  - Pain [None]
  - Impaired work ability [None]
  - Visual impairment [None]
  - Dry skin [None]
  - Skin exfoliation [None]
  - Product quality issue [None]
  - Product label issue [None]
